FAERS Safety Report 8306919-3 (Version None)
Quarter: 2012Q2

REPORT INFORMATION
  Report Type: 
  Country: None (occurrence: None)
  Receive Date: 20120424
  Receipt Date: 20120412
  Transmission Date: 20120825
  Serious: Yes (Other)
  Sender: FDA-Public Use
  Company Number: US-JNJFOC-20120406757

PATIENT
  Sex: Female

DRUGS (6)
  1. HORMONE REPLACEMENT THERAPY NOS [Concomitant]
     Route: 065
     Dates: end: 20110101
  2. SYNTHROID [Concomitant]
     Indication: THYROIDECTOMY
     Route: 065
     Dates: start: 20060101
  3. REMICADE [Suspect]
     Route: 042
     Dates: start: 20120301
  4. REMICADE [Suspect]
     Indication: ARTHRITIS
     Route: 042
     Dates: start: 20110601
  5. REMICADE [Suspect]
     Route: 042
     Dates: start: 20120301
  6. REMICADE [Suspect]
     Indication: CROHN'S DISEASE
     Route: 042
     Dates: start: 20110601

REACTIONS (8)
  - FOOT OPERATION [None]
  - HOT FLUSH [None]
  - PRODUCT QUALITY ISSUE [None]
  - PAIN IN EXTREMITY [None]
  - BODY HEIGHT DECREASED [None]
  - INFUSION RELATED REACTION [None]
  - WEIGHT INCREASED [None]
  - FLUSHING [None]
